FAERS Safety Report 6056416-3 (Version None)
Quarter: 2009Q1

REPORT INFORMATION
  Report Type: 
  Country: None (occurrence: None)
  Receive Date: 20090129
  Receipt Date: 20090126
  Transmission Date: 20090719
  Serious: Yes (Other)
  Sender: FDA-Public Use
  Company Number: US-BAYER-200838991NA

PATIENT
  Sex: Female

DRUGS (2)
  1. AVELOX [Suspect]
     Indication: RESPIRATORY TRACT INFECTION
     Dosage: UNIT DOSE: 400 MG
     Route: 048
     Dates: start: 20080101
  2. ENBREL [Concomitant]

REACTIONS (1)
  - ANAPHYLACTIC REACTION [None]
